FAERS Safety Report 14362232 (Version 1)
Quarter: 2018Q1

REPORT INFORMATION
  Report Type: Spontaneous
  Country: US (occurrence: US)
  Receive Date: 20180105
  Receipt Date: 20180105
  Transmission Date: 20180509
  Serious: No
  Sender: FDA-Public Use
  Company Number: None

PATIENT
  Sex: Female
  Weight: 88 kg

DRUGS (1)
  1. ATOMOXETINE 80MG RISING PHARMACEUTICALS [Suspect]
     Active Substance: ATOMOXETINE
     Route: 048
     Dates: start: 201706, end: 201712

REACTIONS (4)
  - Disturbance in attention [None]
  - Memory impairment [None]
  - Drug ineffective [None]
  - Frustration tolerance decreased [None]
